FAERS Safety Report 5969440-3 (Version None)
Quarter: 2008Q4

REPORT INFORMATION
  Report Type: 
  Country: None (occurrence: None)
  Receive Date: 20081126
  Receipt Date: 20080917
  Transmission Date: 20090506
  Serious: No
  Sender: FDA-Public Use
  Company Number: US-ABBOTT-08P-163-0474410-00

PATIENT
  Sex: Male

DRUGS (5)
  1. SIMCOR [Suspect]
     Indication: DRUG USE FOR UNKNOWN INDICATION
     Dosage: 500/20
     Route: 048
     Dates: start: 20080807, end: 20080821
  2. SIMCOR [Suspect]
     Dates: start: 20080814, end: 20080902
  3. SIMCOR [Suspect]
     Dates: start: 20080903, end: 20080904
  4. ADVANTMENT [Concomitant]
     Indication: DRUG USE FOR UNKNOWN INDICATION
  5. RAMIPRIL [Concomitant]
     Indication: DRUG USE FOR UNKNOWN INDICATION

REACTIONS (6)
  - FEELING HOT [None]
  - FLUSHING [None]
  - PANIC DISORDER [None]
  - PRURITUS [None]
  - TUNNEL VISION [None]
  - VISUAL IMPAIRMENT [None]
